FAERS Safety Report 5625802-5 (Version None)
Quarter: 2008Q1

REPORT INFORMATION
  Report Type: 
  Country: None (occurrence: None)
  Receive Date: 20080214
  Receipt Date: 20080206
  Transmission Date: 20080703
  Serious: Yes (Other)
  Sender: FDA-Public Use
  Company Number: US-ROCHE-546431

PATIENT

DRUGS (3)
  1. INVIRASE [Suspect]
     Indication: DRUG USE FOR UNKNOWN INDICATION
     Route: 064
     Dates: start: 20071212, end: 20080204
  2. NORVIR [Suspect]
     Indication: DRUG USE FOR UNKNOWN INDICATION
     Route: 064
     Dates: start: 20071212, end: 20080204
  3. COMBIVIR [Suspect]
     Indication: DRUG USE FOR UNKNOWN INDICATION
     Dosage: TOTAL DAILY DOSE WAS REPORTED AS '2'.
     Route: 064
     Dates: start: 20071212, end: 20080204

REACTIONS (1)
  - STILLBIRTH [None]
